FAERS Safety Report 9322540 (Version 1)
Quarter: 2013Q2

REPORT INFORMATION
  Report Type: Report from Study
  Country: JP (occurrence: JP)
  Receive Date: 20130531
  Receipt Date: 20130531
  Transmission Date: 20140414
  Serious: Yes (Death, Life-Threatening, Disabling, Other)
  Sender: FDA-Public Use
  Company Number: JP-GENZYME-THYM-1003836

PATIENT
  Age: 69 Year
  Sex: Male
  Weight: 73 kg

DRUGS (15)
  1. THYMOGLOBULIN [Suspect]
     Indication: APLASTIC ANAEMIA
     Dosage: 175 MG, QD
     Route: 065
     Dates: start: 20120530, end: 20120603
  2. SOLU MEDROL [Suspect]
     Indication: PROPHYLAXIS
     Dosage: UNK
     Route: 065
     Dates: start: 20120530, end: 20120603
  3. MUCOSTA [Concomitant]
     Indication: PROPHYLAXIS
     Dosage: UNK
     Route: 065
     Dates: start: 20100210, end: 20120626
  4. BAKTAR [Concomitant]
     Indication: INFECTION PROPHYLAXIS
     Dosage: UNK
     Route: 065
     Dates: start: 20100311, end: 20120630
  5. EXJADE [Concomitant]
     Indication: PROPHYLAXIS
     Dosage: UNK
     Route: 065
     Dates: start: 20120517, end: 20120626
  6. FLIVAS [Concomitant]
     Indication: PROSTATE CANCER
     Dosage: UNK
     Route: 065
     Dates: start: 20100403, end: 20120630
  7. ADONA [Concomitant]
     Indication: HAEMORRHAGIC DIATHESIS
     Dosage: UNK
     Route: 065
     Dates: start: 20120615, end: 20120626
  8. TRANSAMIN [Concomitant]
     Indication: HAEMORRHAGIC DIATHESIS
     Dosage: UNK
     Route: 065
     Dates: start: 20120615, end: 20120626
  9. GRAN [Concomitant]
     Indication: APLASTIC ANAEMIA
     Dosage: 75 MCG, UNK
     Route: 065
     Dates: start: 20120531, end: 20120614
  10. GRAN [Concomitant]
     Indication: APLASTIC ANAEMIA
     Dosage: UNK
     Route: 065
     Dates: start: 20120615, end: 20120624
  11. GRAN [Concomitant]
     Indication: APLASTIC ANAEMIA
     Dosage: UNK
     Route: 065
     Dates: start: 20120625, end: 20120629
  12. MORPHINE HYDROCHLORIDE [Concomitant]
     Indication: APLASTIC ANAEMIA
     Dosage: UNK
     Route: 065
     Dates: start: 20120629, end: 20120629
  13. CALONAL [Concomitant]
     Indication: PROPHYLAXIS
     Dosage: UNK
     Route: 065
     Dates: start: 20120530, end: 20120603
  14. NEOMALLERMIN TR [Concomitant]
     Indication: PROPHYLAXIS
     Dosage: UNK
     Route: 065
     Dates: start: 20120530, end: 20120603
  15. SAXIZON [Concomitant]
     Indication: PROPHYLAXIS
     Dosage: UNK
     Route: 065
     Dates: start: 20120604, end: 20120629

REACTIONS (12)
  - Aplastic anaemia [Fatal]
  - Gastrointestinal haemorrhage [Fatal]
  - Hypoalbuminaemia [Fatal]
  - Febrile neutropenia [Recovered/Resolved]
  - Febrile neutropenia [Fatal]
  - Sepsis [Fatal]
  - Cytomegalovirus enterocolitis [Fatal]
  - Lymphopenia [Fatal]
  - White blood cell count decreased [Fatal]
  - Chest discomfort [Recovered/Resolved]
  - Stomatitis [Fatal]
  - Oedema peripheral [Recovered/Resolved]
